FAERS Safety Report 5120064-X (Version None)
Quarter: 2006Q3

REPORT INFORMATION
  Report Type: 
  Country: None (occurrence: None)
  Receive Date: 20060929
  Receipt Date: 20060920
  Transmission Date: 20061208
  Serious: No
  Sender: FDA-Public Use
  Company Number: E2090-00042-SPO-JP

PATIENT
  Sex: Female

DRUGS (6)
  1. ZONISAMIDE [Suspect]
     Indication: EPILEPSY
     Dosage: SEE IMAGE, PARENTERAL
     Route: 051
     Dates: start: 20060630, end: 20060715
  2. DEPAKENE [Concomitant]
  3. MAGNESIUM OXIDE (MAGNESIUM OXIDE) [Concomitant]
  4. VALPROATE SODIUM [Concomitant]
  5. MUCOSAL (ACETYLCYTEINE) [Concomitant]
  6. MUCODYNE DS (CARBOCISTEINE) [Concomitant]

REACTIONS (2)
  - HAEMATURIA [None]
  - NEPHROLITHIASIS [None]
